FAERS Safety Report 9306854 (Version 1)
Quarter: 2013Q2

REPORT INFORMATION
  Report Type: Spontaneous
  Country: US (occurrence: US)
  Receive Date: 20130523
  Receipt Date: 20130523
  Transmission Date: 20140414
  Serious: Yes (Other)
  Sender: FDA-Public Use
  Company Number: CHPA2013US008562

PATIENT
  Age: 73 Year
  Sex: Female

DRUGS (1)
  1. NUPERCAINAL HEMORRHOIDAL/ANES OINTMENT [Suspect]
     Indication: SKIN IRRITATION
     Dosage: UNK, APPLIED A COUPLE TIMES PER WEEK
     Route: 061

REACTIONS (8)
  - Hypertension [Not Recovered/Not Resolved]
  - Irritable bowel syndrome [Recovering/Resolving]
  - Abdominal pain upper [Recovering/Resolving]
  - Diarrhoea [Recovering/Resolving]
  - Skin irritation [Recovering/Resolving]
  - Therapeutic response unexpected [Unknown]
  - Off label use [Unknown]
  - Expired drug administered [Unknown]
